FAERS Safety Report 6591526-3 (Version None)
Quarter: 2010Q1

REPORT INFORMATION
  Report Type: 
  Country: None (occurrence: None)
  Receive Date: 20100220
  Receipt Date: 20100208
  Transmission Date: 20100710
  Serious: Yes (Other)
  Sender: FDA-Public Use
  Company Number: US-ELI_LILLY_AND_COMPANY-US201002002067

PATIENT
  Sex: Male
  Weight: 95.692 kg

DRUGS (10)
  1. BYETTA [Suspect]
     Indication: TYPE 2 DIABETES MELLITUS
     Dosage: 5 UG, 2/D
     Route: 058
     Dates: start: 20050101
  2. BYETTA [Suspect]
     Dosage: 10 UG, 2/D
     Route: 058
  3. LYRICA [Concomitant]
     Dosage: UNK, UNKNOWN
     Route: 065
  4. ALLOPURINOL [Concomitant]
     Dosage: UNK, UNKNOWN
     Route: 065
  5. TESTIM [Concomitant]
     Dosage: UNK, UNKNOWN
     Route: 065
  6. ZETIA [Concomitant]
     Dosage: UNK, UNKNOWN
     Route: 065
  7. PROVENTIL                               /USA/ [Concomitant]
     Dosage: UNK, UNKNOWN
     Route: 055
  8. QUINAPRIL [Concomitant]
     Dosage: UNK, UNKNOWN
     Route: 065
  9. ASPIRIN [Concomitant]
     Dosage: 81 MG, DAILY (1/D)
     Route: 048
  10. NIACIN [Concomitant]
     Dosage: 2500 MG, DAILY (1/D)
     Route: 048

REACTIONS (3)
  - RENAL IMPAIRMENT [None]
  - RENAL MASS [None]
  - URINE ANALYSIS ABNORMAL [None]
